FAERS Safety Report 8383996-5 (Version None)
Quarter: 2012Q2

REPORT INFORMATION
  Report Type: 
  Country: None (occurrence: None)
  Receive Date: 20120524
  Receipt Date: 20120518
  Transmission Date: 20120825
  Serious: Yes (Other)
  Sender: FDA-Public Use
  Company Number: GB-ROCHE-1070645

PATIENT
  Sex: Male
  Weight: 60 kg

DRUGS (1)
  1. MABTHERA [Suspect]
     Indication: PRODUCT USED FOR UNKNOWN INDICATION
     Dosage: LAST DOSE PRIOR TO SAE:24/AUG/2010
     Route: 065
     Dates: start: 20080728

REACTIONS (1)
  - TRANSIENT ISCHAEMIC ATTACK [None]
